FAERS Safety Report 10072276 (Version 1)
Quarter: 2014Q2

REPORT INFORMATION
  Report Type: Spontaneous
  Country: US (occurrence: US)
  Receive Date: 20140411
  Receipt Date: 20140411
  Transmission Date: 20141212
  Serious: Yes (Other)
  Sender: FDA-Public Use
  Company Number: US-ASTRAZENECA-2014SE24153

PATIENT
  Age: 91 Year
  Sex: Female

DRUGS (5)
  1. NEXIUM [Suspect]
     Indication: GASTROOESOPHAGEAL REFLUX DISEASE
     Route: 048
     Dates: start: 2001
  2. UNKNOWN [Concomitant]
     Indication: HYPERTENSION
     Dosage: 10 OR 25 MG QD
     Route: 048
  3. UNKNOWN FOR CHOLESTEROL [Concomitant]
     Indication: BLOOD CHOLESTEROL ABNORMAL
     Route: 048
  4. UNKNOWN FOR ARTHRITIS [Concomitant]
     Indication: ARTHRITIS
     Dosage: QD FOR YEARS, SOMETIMES BID IF NEEDED
     Route: 048
  5. ARICEPT [Concomitant]
     Indication: MEMORY IMPAIRMENT
     Route: 048
     Dates: start: 2011

REACTIONS (4)
  - Paralysis [Not Recovered/Not Resolved]
  - Gait disturbance [Not Recovered/Not Resolved]
  - Memory impairment [Unknown]
  - Off label use [Unknown]
